FAERS Safety Report 5081640-6 (Version None)
Quarter: 2006Q3

REPORT INFORMATION
  Report Type: 
  Country: None (occurrence: None)
  Receive Date: 20060811
  Receipt Date: 20060802
  Transmission Date: 20061208
  Serious: No
  Sender: FDA-Public Use
  Company Number: E3810-00104-SPO-AU

PATIENT
  Sex: Male

DRUGS (1)
  1. RABEPRAZOLE SODIUM [Suspect]
     Indication: DRUG USE FOR UNKNOWN INDICATION
     Dosage: 20 MG, 1 IN 1 D, ORAL
     Route: 048

REACTIONS (1)
  - RENAL FAILURE [None]
